FAERS Safety Report 15120627 (Version 1)
Quarter: 2018Q3

REPORT INFORMATION
  Report Type: Spontaneous
  Country: US (occurrence: US)
  Receive Date: 20180709
  Receipt Date: 20180709
  Transmission Date: 20181010
  Serious: No
  Sender: FDA-Public Use
  Company Number: US-HORIZON-PEN-0515-2018

PATIENT
  Age: 64 Year
  Sex: Male

DRUGS (9)
  1. POTASSIUM [Concomitant]
     Active Substance: POTASSIUM
  2. ATENOLOL. [Concomitant]
     Active Substance: ATENOLOL
  3. AVALIDE [Concomitant]
     Active Substance: HYDROCHLOROTHIAZIDE\IRBESARTAN
  4. OMEPRAZOLE. [Concomitant]
     Active Substance: OMEPRAZOLE
  5. PENNSAID [Suspect]
     Active Substance: DICLOFENAC SODIUM
     Indication: OSTEOARTHRITIS
     Dosage: 2 PUMPS TWICE DAILY
     Dates: start: 201710, end: 20180607
  6. AMLODIPINE [Concomitant]
     Active Substance: AMLODIPINE BESYLATE
  7. ASPIRIN. [Concomitant]
     Active Substance: ASPIRIN
  8. FLECAINIDE [Concomitant]
     Active Substance: FLECAINIDE
  9. LORAZEPAM. [Concomitant]
     Active Substance: LORAZEPAM

REACTIONS (4)
  - Application site vesicles [Recovering/Resolving]
  - Off label use [Unknown]
  - Application site rash [Unknown]
  - Application site erythema [Recovering/Resolving]

NARRATIVE: CASE EVENT DATE: 201805
